FAERS Safety Report 14506508 (Version 2)
Quarter: 2018Q1

REPORT INFORMATION
  Report Type: Report from Study
  Country: GB (occurrence: GB)
  Receive Date: 20180208
  Receipt Date: 20180215
  Transmission Date: 20180509
  Serious: Yes (Hospitalization)
  Sender: FDA-Public Use
  Company Number: GB-AMGEN-GBRCT2018017079

PATIENT
  Age: 69 Year
  Sex: Female
  Weight: 58.8 kg

DRUGS (11)
  1. CISPLATIN. [Concomitant]
     Active Substance: CISPLATIN
     Dosage: 145 MG, UNK
     Route: 042
     Dates: start: 20170224
  2. LENOLTEC WITH CODEINE NO 1 [Concomitant]
     Dosage: 1 UNK, UNK
     Route: 048
     Dates: start: 200509
  3. IBUPROFEN. [Concomitant]
     Active Substance: IBUPROFEN
     Dosage: 200 MG, UNK
     Route: 048
     Dates: start: 20120901
  4. VITAMIN D [Concomitant]
     Active Substance: CHOLECALCIFEROL
     Dosage: 400 IU, UNK
     Route: 048
     Dates: start: 20120109
  5. PROPANOLOL [Concomitant]
     Active Substance: PROPRANOLOL HYDROCHLORIDE
     Dosage: 80 MG, UNK
     Route: 048
     Dates: start: 200509
  6. FLUOROURACIL. [Concomitant]
     Active Substance: FLUOROURACIL
     Dosage: 7250 MG, UNK
     Route: 042
     Dates: start: 20170224
  7. CYCLOPHOSPHAMIDE. [Concomitant]
     Active Substance: CYCLOPHOSPHAMIDE
     Dosage: UNK
     Dates: start: 20111130, end: 20120109
  8. CALCIUM [Concomitant]
     Active Substance: CALCIUM
     Dosage: 500 MG, UNK
     Route: 048
     Dates: start: 20120109
  9. EPIRUBICIN [Concomitant]
     Active Substance: EPIRUBICIN
     Dosage: UNK
     Dates: start: 20111130, end: 20120109
  10. DENOSUMAB [Suspect]
     Active Substance: DENOSUMAB
     Indication: BREAST CANCER
     Dosage: 120 MG, UNK
     Route: 058
     Dates: start: 20120109
  11. SUMATRIPTAN. [Concomitant]
     Active Substance: SUMATRIPTAN
     Dosage: 50 MG, UNK
     Route: 048
     Dates: start: 200509

REACTIONS (1)
  - Oesophagectomy [Recovered/Resolved]

NARRATIVE: CASE EVENT DATE: 20170507
